FAERS Safety Report 12723092 (Version 2)
Quarter: 2016Q4

REPORT INFORMATION
  Report Type: Report from Study
  Country: IN (occurrence: IN)
  Receive Date: 20160908
  Receipt Date: 20161101
  Transmission Date: 20170207
  Serious: Yes (Death, Other)
  Sender: FDA-Public Use
  Company Number: IN-ROCHE-1826906

PATIENT

DRUGS (4)
  1. HEPARIN [Concomitant]
     Active Substance: HEPARIN SODIUM
     Indication: ANTICOAGULANT THERAPY
  2. WARFARIN [Concomitant]
     Active Substance: WARFARIN
     Indication: ANTICOAGULANT THERAPY
     Route: 065
  3. ALTEPLASE [Suspect]
     Active Substance: ALTEPLASE
     Indication: INTRACRANIAL VENOUS SINUS THROMBOSIS
     Route: 050
  4. ALTEPLASE [Suspect]
     Active Substance: ALTEPLASE
     Dosage: 1 MG/HOUR
     Route: 050

REACTIONS (4)
  - Brain herniation [Fatal]
  - Haemorrhage [Unknown]
  - Haematuria [Unknown]
  - Gingival bleeding [Unknown]
